FAERS Safety Report 8292949 (Version 4)
Quarter: 2013Q3

REPORT INFORMATION
  Report Type: Report from Study
  Country: JP (occurrence: JP)
  Receive Date: 20111215
  Receipt Date: 20130819
  Transmission Date: 20140515
  Serious: Yes (Hospitalization)
  Sender: FDA-Public Use
  Company Number: JP-AMGEN-JPNCT2011042536

PATIENT
  Age: 79 Year
  Sex: Male
  Weight: 46 kg

DRUGS (8)
  1. PANITUMUMAB [Suspect]
     Indication: COLORECTAL CANCER
     Dosage: 300 MG, Q2WK
     Route: 041
     Dates: start: 20110426, end: 20110426
  2. PANITUMUMAB [Suspect]
     Dosage: 300 MG, Q2WK
     Route: 041
     Dates: start: 20110525, end: 20110525
  3. IRINOTECAN HYDROCHLORIDE [Suspect]
     Indication: COLORECTAL CANCER
     Dosage: 250 MG, UNK
     Route: 041
     Dates: start: 20110426, end: 20110426
  4. IRINOTECAN HYDROCHLORIDE [Suspect]
     Dosage: 250 MG, UNK
     Route: 041
     Dates: start: 20110525, end: 20110525
  5. CALCIUM LEVOFOLINATE [Suspect]
     Indication: COLORECTAL CANCER
     Dosage: 300 MG, UNK
     Route: 041
     Dates: start: 20110426, end: 20110426
  6. CALCIUM LEVOFOLINATE [Suspect]
     Dosage: 300 MG, UNK
     Route: 041
     Dates: start: 20110525, end: 20110525
  7. FLUOROURACIL [Interacting]
     Indication: COLORECTAL CANCER
     Dosage: 3500 MG, UNK
     Route: 041
     Dates: start: 20110426, end: 20110426
  8. FLUOROURACIL [Interacting]
     Dosage: 3500 MG, UNK
     Route: 041
     Dates: start: 20110525, end: 20110525

REACTIONS (3)
  - Interstitial lung disease [Recovered/Resolved with Sequelae]
  - Decreased appetite [Unknown]
  - Malaise [Recovering/Resolving]
